FAERS Safety Report 23984698 (Version 3)
Quarter: 2024Q3

REPORT INFORMATION
  Report Type: Spontaneous
  Country: US (occurrence: US)
  Receive Date: 20240618
  Receipt Date: 20240722
  Transmission Date: 20241016
  Serious: No
  Sender: EPIC PHARM
  Company Number: US-EPICPHARMA-US-2024EPCSPO00734

PATIENT
  Age: 76 Year
  Sex: Female
  Weight: 160 kg

DRUGS (1)
  1. BUPROPION HYDROCHLORIDE [Suspect]
     Active Substance: BUPROPION HYDROCHLORIDE
     Indication: Depression
     Route: 048
     Dates: start: 20240603

REACTIONS (5)
  - Oral discomfort [Not Recovered/Not Resolved]
  - Tongue erythema [Not Recovered/Not Resolved]
  - Dysgeusia [Not Recovered/Not Resolved]
  - Swollen tongue [Not Recovered/Not Resolved]
  - Product taste abnormal [Unknown]

NARRATIVE: CASE EVENT DATE: 20240603
